FAERS Safety Report 14477442 (Version 1)
Quarter: 2018Q1

REPORT INFORMATION
  Report Type: Report from Study
  Country: US (occurrence: US)
  Receive Date: 20180201
  Receipt Date: 20180201
  Transmission Date: 20180509
  Serious: No
  Sender: FDA-Public Use
  Company Number: US-EXELIXIS-CABO-17010219

PATIENT
  Age: 76 Year
  Sex: Female

DRUGS (7)
  1. METHYLPHENIDATE. [Concomitant]
     Active Substance: METHYLPHENIDATE
  2. LORAZEPAM. [Concomitant]
     Active Substance: LORAZEPAM
  3. ALBUTEROL. [Concomitant]
     Active Substance: ALBUTEROL
  4. CABOMETYX [Suspect]
     Active Substance: CABOZANTINIB S-MALATE
     Indication: LUNG NEOPLASM MALIGNANT
     Dosage: 60 MG, QD
     Route: 048
     Dates: start: 20170509, end: 2017
  5. POTASSIUM [Concomitant]
     Active Substance: POTASSIUM
  6. PREDNISONE. [Concomitant]
     Active Substance: PREDNISONE
  7. CABOMETYX [Suspect]
     Active Substance: CABOZANTINIB S-MALATE
     Dosage: 40 MG, QD
     Route: 048
     Dates: start: 2017

REACTIONS (8)
  - Off label use [Unknown]
  - Oral mucosal exfoliation [Recovering/Resolving]
  - Dry skin [Recovering/Resolving]
  - Hypoacusis [Recovering/Resolving]
  - Skin exfoliation [Recovering/Resolving]
  - Abdominal pain [Recovering/Resolving]
  - Eyelid exfoliation [Recovering/Resolving]
  - Drug dose omission [Unknown]

NARRATIVE: CASE EVENT DATE: 20170817
